FAERS Safety Report 9753718 (Version 1)
Quarter: 2013Q4

REPORT INFORMATION
  Report Type: Spontaneous
  Country: US (occurrence: US)
  Receive Date: 20131213
  Receipt Date: 20131213
  Transmission Date: 20140711
  Serious: No
  Sender: FDA-Public Use
  Company Number: US-GILEAD-2010-0026517

PATIENT
  Sex: Female
  Weight: 60.78 kg

DRUGS (20)
  1. LETAIRIS [Suspect]
     Indication: PULMONARY ARTERIAL HYPERTENSION
     Route: 048
  2. LETAIRIS [Suspect]
     Route: 048
     Dates: start: 20091221
  3. REVATIO [Concomitant]
  4. FUROSEMIDE [Concomitant]
  5. MAVIK [Concomitant]
  6. HUMALOG [Concomitant]
  7. LEVEMIR [Concomitant]
  8. SYNTHROID [Concomitant]
  9. FOSAMAX [Concomitant]
  10. LODINE [Concomitant]
  11. ARAVA [Concomitant]
  12. REMICADE [Concomitant]
  13. PRAVASTATIN [Concomitant]
  14. PRILOSEC [Concomitant]
  15. PROBIOTIC COMPLEX CAPSULE [Concomitant]
  16. POTASSIUM CHLORIDE [Concomitant]
  17. VITAMIN E [Concomitant]
  18. VITAMIN D + C [Concomitant]
  19. CALCIUM [Concomitant]
  20. MULTIVITAMIN [Concomitant]

REACTIONS (1)
  - Dry mouth [Unknown]
